FAERS Safety Report 19634019 (Version 1)
Quarter: 2021Q3

REPORT INFORMATION
  Report Type: Spontaneous
  Country: US (occurrence: US)
  Receive Date: 20210729
  Receipt Date: 20210729
  Transmission Date: 20211014
  Serious: Yes (Death)
  Sender: FDA-Public Use
  Company Number: None

PATIENT
  Sex: Female

DRUGS (4)
  1. GABAPENTIN. [Suspect]
     Active Substance: GABAPENTIN
  2. HYDROMORPHON [Suspect]
     Active Substance: HYDROMORPHONE
  3. ENTECAVIR 0.5MG [Suspect]
     Active Substance: ENTECAVIR
     Indication: HEPATITIS B
     Route: 048
     Dates: start: 20180207
  4. PEMAZYRE [Suspect]
     Active Substance: PEMIGATINIB

REACTIONS (1)
  - Death [None]
